FAERS Safety Report 10084201 (Version 1)
Quarter: 2014Q2

REPORT INFORMATION
  Report Type: Spontaneous
  Country: US (occurrence: None)
  Receive Date: 20140415
  Receipt Date: 20140415
  Transmission Date: 20141212
  Serious: Yes (Hospitalization, Other)
  Sender: FDA-Public Use
  Company Number: ADR-2014-00592

PATIENT
  Age: 64 Year
  Sex: Female

DRUGS (1)
  1. LIORESAL [Suspect]

REACTIONS (2)
  - Haemorrhagic stroke [None]
  - Device failure [None]
